FAERS Safety Report 9492441 (Version 1)
Quarter: 2013Q3

REPORT INFORMATION
  Report Type: Spontaneous
  Country: US (occurrence: US)
  Receive Date: 20130830
  Receipt Date: 20130830
  Transmission Date: 20140515
  Serious: Yes (Other)
  Sender: FDA-Public Use
  Company Number: US-ABBOTT-13P-163-1136961-00

PATIENT
  Sex: Female

DRUGS (1)
  1. HUMIRA [Suspect]
     Indication: CROHN^S DISEASE

REACTIONS (10)
  - Renal cancer stage III [Unknown]
  - Arthralgia [Unknown]
  - Myalgia [Unknown]
  - Panic attack [Unknown]
  - Amnesia [Unknown]
  - Confusional state [Unknown]
  - Alopecia [Unknown]
  - Weight gain poor [Unknown]
  - Pain [Unknown]
  - Urinary tract infection [Unknown]
